FAERS Safety Report 12395803 (Version 3)
Quarter: 2016Q2

REPORT INFORMATION
  Report Type: Spontaneous
  Country: IT (occurrence: IT)
  Receive Date: 20160523
  Receipt Date: 20160623
  Transmission Date: 20160815
  Serious: Yes (Hospitalization, Other)
  Sender: FDA-Public Use
  Company Number: IT-ASTRAZENECA-2016SE54807

PATIENT
  Age: 64 Year
  Sex: Male

DRUGS (5)
  1. ASA [Suspect]
     Active Substance: ASPIRIN
     Indication: ANTIPLATELET THERAPY
     Route: 065
  2. TICAGRELOR [Suspect]
     Active Substance: TICAGRELOR
     Indication: ANTIPLATELET THERAPY
     Route: 048
  3. CILOSTAZOL. [Suspect]
     Active Substance: CILOSTAZOL
     Route: 065
  4. UROKINASE [Concomitant]
     Active Substance: UROKINASE
  5. ENOXAPARIN [Suspect]
     Active Substance: ENOXAPARIN
     Route: 065

REACTIONS (7)
  - Blue toe syndrome [Unknown]
  - Melaena [Unknown]
  - Hypotension [Unknown]
  - Anaemia [Unknown]
  - Aortic dissection [Unknown]
  - Intestinal polyp [Unknown]
  - Gastrointestinal angiodysplasia [Unknown]
